FAERS Safety Report 15846953 (Version 1)
Quarter: 2019Q1

REPORT INFORMATION
  Report Type: Spontaneous
  Country: JP (occurrence: JP)
  Receive Date: 20190121
  Receipt Date: 20190121
  Transmission Date: 20190417
  Serious: Yes (Other)
  Sender: FDA-Public Use
  Company Number: JP-ASTELLAS-2019JP000155AA

PATIENT
  Age: 42 Year
  Sex: Male

DRUGS (2)
  1. PROGRAF [Suspect]
     Active Substance: TACROLIMUS\TACROLIMUS ANHYDROUS
     Indication: RENAL AND PANCREAS TRANSPLANT
     Dosage: 3 MG, MORNING 2 MG, NIGHT 1 MG
     Route: 048
  2. PROGRAF [Suspect]
     Active Substance: TACROLIMUS\TACROLIMUS ANHYDROUS
     Indication: RENAL AND PANCREAS TRANSPLANT
     Dosage: 0.5 MG, ONCE DAILY AT NIGHT
     Route: 048

REACTIONS (2)
  - General physical health deterioration [Unknown]
  - Malignant neoplasm progression [Unknown]
